FAERS Safety Report 9171489 (Version 1)
Quarter: 2013Q1

REPORT INFORMATION
  Report Type: Spontaneous
  Country: GB (occurrence: GB)
  Receive Date: 20130319
  Receipt Date: 20130319
  Transmission Date: 20140127
  Serious: Yes (Other)
  Sender: FDA-Public Use
  Company Number: GB-ASTELLAS-2013EU002197

PATIENT
  Sex: Female

DRUGS (2)
  1. VESICARE [Suspect]
     Dosage: 5 MG, UNKNOWN/D
     Route: 065
     Dates: end: 20130228
  2. TRIMETHOPRIM [Concomitant]
     Dosage: UNK
     Route: 065

REACTIONS (11)
  - Dizziness [Unknown]
  - Fall [Unknown]
  - Tachycardia [Unknown]
  - Lethargy [Unknown]
  - Dry throat [Unknown]
  - Dry eye [Unknown]
  - Vision blurred [Unknown]
  - Visual impairment [Unknown]
  - Abdominal distension [Unknown]
  - Dry mouth [Unknown]
  - Pruritus [Unknown]
